FAERS Safety Report 4686309-5 (Version None)
Quarter: 2005Q2

REPORT INFORMATION
  Report Type: 
  Country: None (occurrence: None)
  Receive Date: 20050606
  Receipt Date: 20050523
  Transmission Date: 20051028
  Serious: Yes (Hospitalization, Other)
  Sender: FDA-Public Use
  Company Number: USA050598753

PATIENT
  Age: 79 Year
  Sex: Female

DRUGS (1)
  1. FORTEO [Suspect]
     Dates: start: 20050301

REACTIONS (6)
  - ABDOMINAL PAIN UPPER [None]
  - INCORRECT DOSE ADMINISTERED [None]
  - PANCREATIC CYST [None]
  - PANCREATIC NEOPLASM [None]
  - PHARMACEUTICAL PRODUCT COMPLAINT [None]
  - POSITRON EMISSION TOMOGRAM ABNORMAL [None]
